FAERS Safety Report 10470846 (Version 2)
Quarter: 2014Q3

REPORT INFORMATION
  Report Type: Spontaneous
  Country: CH (occurrence: CH)
  Receive Date: 20140923
  Receipt Date: 20140926
  Transmission Date: 20150326
  Serious: Yes (Hospitalization)
  Sender: FDA-Public Use
  Company Number: CH-009507513-1409CHE007129

PATIENT
  Age: 90 Year
  Sex: Male

DRUGS (3)
  1. REMERON SOLTAB [Suspect]
     Active Substance: MIRTAZAPINE
     Dosage: FREQUENCY: 7 DF
     Route: 048
     Dates: start: 20140726, end: 20140726
  2. ZOLPIDEM TARTRATE. [Suspect]
     Active Substance: ZOLPIDEM TARTRATE
     Dosage: FREQUENCY: 70 DF
     Route: 048
     Dates: start: 20140726, end: 20140726
  3. BENSERAZIDE HYDROCHLORIDE (+) LEVODOPA [Suspect]
     Active Substance: BENSERAZIDE\LEVODOPA
     Dosage: HALF A BOTTLE
     Route: 048
     Dates: start: 20140726, end: 20140726

REACTIONS (4)
  - Confusional state [Recovered/Resolved]
  - Accidental overdose [Recovered/Resolved]
  - Somnolence [Recovered/Resolved]
  - Disorientation [Recovered/Resolved]

NARRATIVE: CASE EVENT DATE: 20140726
